FAERS Safety Report 7603511-0 (Version None)
Quarter: 2011Q3

REPORT INFORMATION
  Report Type: 
  Country: None (occurrence: None)
  Receive Date: 20110712
  Receipt Date: 20110629
  Transmission Date: 20111222
  Serious: Yes (Hospitalization)
  Sender: FDA-Public Use
  Company Number: CA-JNJFOC-20110700968

PATIENT
  Sex: Male
  Weight: 71.5 kg

DRUGS (2)
  1. REMICADE [Suspect]
     Route: 042
     Dates: start: 20090909
  2. REMICADE [Suspect]
     Indication: CROHN'S DISEASE
     Route: 042
     Dates: start: 20110629

REACTIONS (5)
  - INTESTINAL STENOSIS [None]
  - DUODENAL STENOSIS [None]
  - ENTERITIS [None]
  - JEJUNAL STENOSIS [None]
  - ILEAL STENOSIS [None]
